FAERS Safety Report 12931976 (Version 1)
Quarter: 2016Q4

REPORT INFORMATION
  Report Type: Spontaneous
  Country: GB (occurrence: GB)
  Receive Date: 20161111
  Receipt Date: 20161111
  Transmission Date: 20170207
  Serious: Yes (Hospitalization)
  Sender: FDA-Public Use
  Company Number: GB-JNJFOC-20161107070

PATIENT
  Sex: Female

DRUGS (15)
  1. IMODIUM [Suspect]
     Active Substance: LOPERAMIDE HYDROCHLORIDE
     Route: 048
  2. QUESTRAN [Concomitant]
     Active Substance: CHOLESTYRAMINE
     Indication: GASTROINTESTINAL STOMA COMPLICATION
     Route: 065
  3. DIORALYTE [Concomitant]
     Active Substance: CITRIC ACID MONOHYDRATE\DEXTROSE\POTASSIUM CATION\SODIUM CHLORIDE
     Indication: GASTROINTESTINAL STOMA COMPLICATION
     Dosage: 10 SACHETS IN A LITRE OF WATER
     Route: 065
  4. OMEPRAZOLE. [Concomitant]
     Active Substance: OMEPRAZOLE
     Indication: GASTROINTESTINAL STOMA COMPLICATION
     Route: 065
  5. OCTREOTIDE. [Concomitant]
     Active Substance: OCTREOTIDE
     Indication: GASTROINTESTINAL STOMA COMPLICATION
     Route: 058
  6. IMODIUM [Suspect]
     Active Substance: LOPERAMIDE HYDROCHLORIDE
     Indication: GASTROINTESTINAL STOMA COMPLICATION
     Route: 048
  7. PARACETAMOL [Concomitant]
     Active Substance: ACETAMINOPHEN
     Dosage: REFUSING CURRENTLY
     Route: 065
  8. ADCAL D3 [Concomitant]
     Active Substance: CALCIUM CARBONATE\CHOLECALCIFEROL
     Indication: FLUID REPLACEMENT
     Route: 065
  9. ADCAL D3 [Concomitant]
     Active Substance: CALCIUM CARBONATE\CHOLECALCIFEROL
     Indication: GASTROINTESTINAL STOMA COMPLICATION
     Route: 065
  10. DIORALYTE [Concomitant]
     Active Substance: CITRIC ACID MONOHYDRATE\DEXTROSE\POTASSIUM CATION\SODIUM CHLORIDE
     Indication: FLUID REPLACEMENT
     Dosage: 10 SACHETS IN A LITRE OF WATER
     Route: 065
  11. QUESTRAN [Concomitant]
     Active Substance: CHOLESTYRAMINE
     Indication: FLUID REPLACEMENT
     Route: 065
  12. CODEINE [Concomitant]
     Active Substance: CODEINE
     Indication: GASTROINTESTINAL STOMA COMPLICATION
     Route: 065
  13. OMEPRAZOLE. [Concomitant]
     Active Substance: OMEPRAZOLE
     Indication: FLUID REPLACEMENT
     Route: 065
  14. CODEINE [Concomitant]
     Active Substance: CODEINE
     Indication: FLUID REPLACEMENT
     Route: 065
  15. OCTREOTIDE. [Concomitant]
     Active Substance: OCTREOTIDE
     Indication: FLUID REPLACEMENT
     Route: 058

REACTIONS (3)
  - Short-bowel syndrome [Unknown]
  - Incorrect dose administered [Unknown]
  - Off label use [Unknown]
